FAERS Safety Report 25389824 (Version 2)
Quarter: 2025Q3

REPORT INFORMATION
  Report Type: Spontaneous
  Country: JP (occurrence: JP)
  Receive Date: 20250603
  Receipt Date: 20250731
  Transmission Date: 20251021
  Serious: Yes (Hospitalization, Other)
  Sender: MERCK SHARP & DOHME LLC
  Company Number: JP-009507513-2290739

PATIENT
  Sex: Male

DRUGS (3)
  1. KEYTRUDA [Suspect]
     Active Substance: PEMBROLIZUMAB
     Indication: Non-small cell lung cancer stage III
     Route: 041
     Dates: start: 202504, end: 202504
  2. CISPLATIN [Suspect]
     Active Substance: CISPLATIN
     Indication: Non-small cell lung cancer stage III
     Route: 041
     Dates: start: 202504, end: 202504
  3. PEMETREXED [Suspect]
     Active Substance: PEMETREXED
     Indication: Non-small cell lung cancer stage III
     Route: 041
     Dates: start: 202504, end: 202504

REACTIONS (3)
  - Renal impairment [Not Recovered/Not Resolved]
  - Immune-mediated adrenal insufficiency [Not Recovered/Not Resolved]
  - Lung perforation [Recovered/Resolved]

NARRATIVE: CASE EVENT DATE: 20250401
